FAERS Safety Report 4731613-5 (Version None)
Quarter: 2005Q3

REPORT INFORMATION
  Report Type: 
  Country: None (occurrence: None)
  Receive Date: 20050725
  Receipt Date: 20050223
  Transmission Date: 20060218
  Serious: Yes (Disabling)
  Sender: FDA-Public Use
  Company Number: WAES 0502USA03237

PATIENT
  Age: 67 Year
  Sex: Female

DRUGS (2)
  1. VIOXX [Suspect]
     Indication: OSTEOARTHRITIS
     Dosage: 12.5 MG/DAILY/PO
     Route: 048
     Dates: start: 20000201, end: 20040901
  2. ZOCOR [Concomitant]

REACTIONS (1)
  - OEDEMA PERIPHERAL [None]
